FAERS Safety Report 5318916-0 (Version None)
Quarter: 2007Q2

REPORT INFORMATION
  Report Type: 
  Country: None (occurrence: None)
  Receive Date: 20070504
  Receipt Date: 20070504
  Transmission Date: 20071010
  Serious: Yes (Death, Hospitalization)
  Sender: FDA-Public Use
  Company Number: None

PATIENT
  Sex: Male
  Weight: 79.8 kg

DRUGS (1)
  1. ALIMTA [Suspect]
     Dosage: 975 MG
     Dates: start: 20070301

REACTIONS (1)
  - DEATH [None]
